FAERS Safety Report 24161158 (Version 1)
Quarter: 2024Q3

REPORT INFORMATION
  Report Type: Spontaneous
  Country: US (occurrence: US)
  Receive Date: 20240801
  Receipt Date: 20240801
  Transmission Date: 20241016
  Serious: Yes (Death, Life-Threatening, Hospitalization, Other)
  Sender: SANOFI AVENTIS
  Company Number: US-SA-SAC20240724000257

PATIENT
  Age: 92 Year
  Sex: Male
  Weight: 55.7 kg

DRUGS (6)
  1. DUPIXENT [Suspect]
     Active Substance: DUPILUMAB
     Indication: Dermatitis atopic
     Dosage: 300 MG, QOW
     Route: 058
  2. PRAVASTATIN SODIUM [Concomitant]
     Active Substance: PRAVASTATIN SODIUM
  3. FINASTERIDE [Concomitant]
     Active Substance: FINASTERIDE
  4. TAMSULOSIN HYDROCHLORIDE [Concomitant]
     Active Substance: TAMSULOSIN HYDROCHLORIDE
  5. RISPERIDONE [Concomitant]
     Active Substance: RISPERIDONE
  6. DONEPEZIL HYDROCHLORIDE [Concomitant]
     Active Substance: DONEPEZIL HYDROCHLORIDE

REACTIONS (2)
  - Fall [Fatal]
  - Head injury [Fatal]
